FAERS Safety Report 12762248 (Version 1)
Quarter: 2016Q3

REPORT INFORMATION
  Report Type: Report from Study
  Country: AT (occurrence: AT)
  Receive Date: 20160920
  Receipt Date: 20160920
  Transmission Date: 20161109
  Serious: Yes (Hospitalization)
  Sender: FDA-Public Use
  Company Number: AT-VELOXIS PHARMACEUTICALS-1057470

PATIENT
  Age: 50 Year
  Sex: Male
  Weight: 96 kg

DRUGS (11)
  1. MYFENAX [Concomitant]
     Active Substance: MYCOPHENOLATE MOFETIL
  2. THROMBO ASS [Concomitant]
     Active Substance: ASPIRIN
     Dates: start: 20151111
  3. LENDORM [Concomitant]
     Active Substance: BROTIZOLAM
     Dates: start: 20151111
  4. ADVAGRAF [Concomitant]
     Active Substance: TACROLIMUS
  5. SPIRIVA [Concomitant]
     Active Substance: TIOTROPIUM BROMIDE MONOHYDRATE
     Dates: start: 20151111
  6. ENVARSUS XR [Suspect]
     Active Substance: TACROLIMUS
     Indication: IMMUNOSUPPRESSANT DRUG THERAPY
     Route: 048
     Dates: start: 20160129
  7. APREDNISLON [Concomitant]
     Active Substance: PREDNISOLONE
  8. AMLODIPIN [Concomitant]
     Active Substance: AMLODIPINE BESYLATE
     Dates: start: 20151214
  9. PANTOLOC [Concomitant]
     Active Substance: PANTOPRAZOLE SODIUM
     Dates: start: 20151111
  10. VALCYTE [Concomitant]
     Active Substance: VALGANCICLOVIR HYDROCHLORIDE
     Dates: start: 20151111
  11. GALVUS [Concomitant]
     Active Substance: VILDAGLIPTIN
     Dates: start: 20151111

REACTIONS (2)
  - Pyrexia [Recovered/Resolved]
  - Pneumonia [Recovered/Resolved]

NARRATIVE: CASE EVENT DATE: 20160129
